FAERS Safety Report 10249222 (Version 1)
Quarter: 2014Q2

REPORT INFORMATION
  Report Type: Spontaneous
  Country: US (occurrence: None)
  Receive Date: 20140522
  Receipt Date: 20140522
  Transmission Date: 20141212
  Serious: No
  Sender: FDA-Public Use
  Company Number: 1000065882

PATIENT
  Sex: Female

DRUGS (1)
  1. TUDORZA [Suspect]

REACTIONS (2)
  - Headache [None]
  - Dry mouth [None]
